APPROVED DRUG PRODUCT: DONEPEZIL HYDROCHLORIDE
Active Ingredient: DONEPEZIL HYDROCHLORIDE
Strength: 5MG
Dosage Form/Route: TABLET;ORAL
Application: A201634 | Product #001
Applicant: INDICUS PHARMA LLC
Approved: Jun 13, 2012 | RLD: No | RS: No | Type: DISCN